FAERS Safety Report 18666696 (Version 3)
Quarter: 2021Q2

REPORT INFORMATION
  Report Type: Spontaneous
  Country: JP (occurrence: JP)
  Receive Date: 20201227
  Receipt Date: 20210520
  Transmission Date: 20210717
  Serious: Yes (Death, Hospitalization, Other)
  Sender: FDA-Public Use
  Company Number: JP-BRISTOL-MYERS SQUIBB COMPANY-BMS-2017-105041

PATIENT
  Age: 69 Year
  Sex: Male

DRUGS (2)
  1. FOIPAN [Suspect]
     Active Substance: CAMOSTAT MESYLATE
     Indication: PANCREATIC ENZYMES INCREASED
     Dosage: 600 MILLIGRAM, QD
     Route: 048
     Dates: start: 2017
  2. OPDIVO [Suspect]
     Active Substance: NIVOLUMAB
     Indication: METASTATIC RENAL CELL CARCINOMA
     Dosage: 215.25 MILLIGRAM
     Route: 041
     Dates: start: 20170303, end: 20190308

REACTIONS (4)
  - Fulminant type 1 diabetes mellitus [Unknown]
  - Death [Fatal]
  - Hyperglycaemia [Recovering/Resolving]
  - Diabetic ketoacidosis [Recovering/Resolving]

NARRATIVE: CASE EVENT DATE: 20170414
